FAERS Safety Report 13958304 (Version 1)
Quarter: 2017Q3

REPORT INFORMATION
  Report Type: Spontaneous
  Country: US (occurrence: US)
  Receive Date: 20170912
  Receipt Date: 20170912
  Transmission Date: 20171128
  Serious: Yes (Death, Other)
  Sender: FDA-Public Use
  Company Number: PHHY2017US131994

PATIENT
  Sex: Female

DRUGS (5)
  1. FULVESTRANT. [Concomitant]
     Active Substance: FULVESTRANT
     Indication: METASTASES TO LIVER
     Route: 065
  2. ATORVASTATIN [Suspect]
     Active Substance: ATORVASTATIN
     Indication: PRODUCT USED FOR UNKNOWN INDICATION
     Dosage: 40 MG, QD
     Route: 065
  3. FULVESTRANT. [Concomitant]
     Active Substance: FULVESTRANT
     Indication: METASTASES TO BONE
  4. PALBOCICLIB [Interacting]
     Active Substance: PALBOCICLIB
     Indication: METASTASES TO LIVER
     Dosage: 125 MG, QD
     Route: 048
  5. PALBOCICLIB [Interacting]
     Active Substance: PALBOCICLIB
     Indication: METASTASES TO BONE

REACTIONS (6)
  - Drug interaction [Unknown]
  - Pain in extremity [Fatal]
  - Rhabdomyolysis [Fatal]
  - Paresis [Fatal]
  - Asthenia [Fatal]
  - Muscular weakness [Fatal]
